FAERS Safety Report 20798105 (Version 2)
Quarter: 2022Q2

REPORT INFORMATION
  Report Type: Spontaneous
  Country: JP (occurrence: JP)
  Receive Date: 20220507
  Receipt Date: 20220621
  Transmission Date: 20220721
  Serious: Yes (Hospitalization)
  Sender: FDA-Public Use
  Company Number: JP-DSJP-DSJ-2022-114877

PATIENT
  Age: 39 Year
  Sex: Female

DRUGS (25)
  1. DENOSUMAB [Suspect]
     Active Substance: DENOSUMAB
     Indication: Osteoporosis
     Dosage: 60 MILLIGRAM, Q6MO
     Route: 058
     Dates: start: 20220303
  2. ELDECALCITOL [Suspect]
     Active Substance: ELDECALCITOL
     Indication: Osteoporosis
     Dosage: 0.5 MICROGRAM, QD
     Route: 048
     Dates: start: 202112, end: 202203
  3. ELDECALCITOL [Suspect]
     Active Substance: ELDECALCITOL
     Dosage: 1 MICROGRAM, QD
     Route: 048
     Dates: start: 202203, end: 202203
  4. ELDECALCITOL [Suspect]
     Active Substance: ELDECALCITOL
     Dosage: 0.75 MICROGRAM, QD
     Route: 048
     Dates: start: 2022
  5. CALCIUM LACTATE [Suspect]
     Active Substance: CALCIUM LACTATE
     Indication: Hypocalcaemia
     Dosage: 6 GRAM, QD
     Route: 048
     Dates: start: 20220315, end: 202203
  6. CALCIUM LACTATE [Suspect]
     Active Substance: CALCIUM LACTATE
     Dosage: 9 GRAM, QD
     Route: 048
     Dates: start: 202203, end: 2022
  7. CALCIUM LACTATE [Suspect]
     Active Substance: CALCIUM LACTATE
     Dosage: 12 GRAM, QD
     Route: 048
     Dates: start: 2022, end: 202204
  8. CALCIUM LACTATE [Suspect]
     Active Substance: CALCIUM LACTATE
     Dosage: 9 GRAM, QD
     Route: 048
     Dates: start: 202204, end: 202204
  9. CALCIUM LACTATE [Suspect]
     Active Substance: CALCIUM LACTATE
     Dosage: 12 GRAM, QD
     Route: 048
     Dates: start: 202204, end: 202204
  10. CALCIUM LACTATE [Suspect]
     Active Substance: CALCIUM LACTATE
     Dosage: 15 GRAM, QD
     Route: 048
     Dates: start: 202204, end: 202204
  11. CALCIUM LACTATE [Suspect]
     Active Substance: CALCIUM LACTATE
     Dosage: 5 GRAM, QD
     Route: 048
     Dates: start: 202204, end: 202204
  12. CALCIUM LACTATE [Suspect]
     Active Substance: CALCIUM LACTATE
     Dosage: 3 GRAM, QD
     Route: 048
     Dates: start: 202204, end: 202204
  13. CALCIUM LACTATE [Suspect]
     Active Substance: CALCIUM LACTATE
     Dosage: 5 GRAM, QD
     Route: 048
     Dates: start: 202204, end: 202204
  14. CALCIUM LACTATE [Suspect]
     Active Substance: CALCIUM LACTATE
     Dosage: 6 GRAM, QD
     Route: 048
     Dates: start: 202204, end: 202205
  15. CALCIUM LACTATE [Suspect]
     Active Substance: CALCIUM LACTATE
     Dosage: 9 GRAM, QD
     Route: 048
     Dates: start: 202205, end: 202205
  16. CALCIUM LACTATE [Suspect]
     Active Substance: CALCIUM LACTATE
     Dosage: 6 GRAM, QD
     Route: 048
     Dates: start: 202205, end: 202205
  17. CALCIUM LACTATE [Suspect]
     Active Substance: CALCIUM LACTATE
     Dosage: 4 GRAM, QD
     Route: 048
     Dates: start: 202205, end: 202205
  18. CALCIUM LACTATE [Suspect]
     Active Substance: CALCIUM LACTATE
     Dosage: 2 GRAM, QD
     Route: 048
     Dates: start: 202205, end: 20220519
  19. ALFACALCIDOL [Suspect]
     Active Substance: ALFACALCIDOL
     Indication: Osteoporosis
     Dosage: 2 MICROGRAM, QD
     Route: 065
     Dates: start: 202203, end: 202203
  20. ALFACALCIDOL [Suspect]
     Active Substance: ALFACALCIDOL
     Dosage: 4 MICROGRAM, QD
     Route: 065
     Dates: start: 20220329, end: 20220421
  21. ALFACALCIDOL [Suspect]
     Active Substance: ALFACALCIDOL
     Dosage: 1 MICROGRAM, QD
     Route: 065
     Dates: start: 202204, end: 2022
  22. POTASSIUM CHLORIDE [Concomitant]
     Active Substance: POTASSIUM CHLORIDE
     Indication: Hypokalaemia
     Dosage: 72 MEQ, AS NEEDED
     Route: 048
     Dates: start: 20220315
  23. POTASSIUM CHLORIDE [Concomitant]
     Active Substance: POTASSIUM CHLORIDE
     Dosage: 96 MEQ, AS NEEDED
     Route: 042
     Dates: start: 20220325
  24. FUROSEMIDE [Suspect]
     Active Substance: FUROSEMIDE
     Indication: Product used for unknown indication
     Dosage: 40 MG, AS NEEDED
     Route: 065
     Dates: start: 20220421, end: 20220423
  25. ISOTONIC SODIUM CHLORIDE SOLUTION [Concomitant]
     Active Substance: SODIUM CHLORIDE
     Dosage: 2000 ML
     Route: 065
     Dates: start: 20220421

REACTIONS (7)
  - Hypercalcaemia [Recovering/Resolving]
  - Hypocalcaemia [Recovering/Resolving]
  - Hypocalcaemia [Recovering/Resolving]
  - Hypomagnesaemia [Recovering/Resolving]
  - Hypokalaemia [Recovering/Resolving]
  - Hypokalaemia [Recovering/Resolving]
  - No adverse event [Unknown]

NARRATIVE: CASE EVENT DATE: 20220308
